FAERS Safety Report 7864799-4 (Version None)
Quarter: 2011Q4

REPORT INFORMATION
  Report Type: 
  Country: None (occurrence: None)
  Receive Date: 20111028
  Receipt Date: 20110713
  Transmission Date: 20120403
  Serious: No
  Sender: FDA-Public Use
  Company Number: US-GLAXOSMITHKLINE-A0832519A

PATIENT
  Age: 63 Year
  Sex: Male

DRUGS (2)
  1. NO CONCURRENT MEDICATION [Concomitant]
  2. ADVAIR DISKUS 100/50 [Suspect]
     Indication: DYSPNOEA
     Dosage: 1PUFF TWICE PER DAY
     Route: 055
     Dates: start: 20091125

REACTIONS (6)
  - AMNESIA [None]
  - PAIN IN EXTREMITY [None]
  - NERVOUSNESS [None]
  - EXPIRED DRUG ADMINISTERED [None]
  - TREMOR [None]
  - HEADACHE [None]
